FAERS Safety Report 4732560-5 (Version None)
Quarter: 2005Q3

REPORT INFORMATION
  Report Type: 
  Country: None (occurrence: None)
  Receive Date: 20050801
  Receipt Date: 20050801
  Transmission Date: 20060218
  Serious: Yes (Hospitalization)
  Sender: FDA-Public Use
  Company Number: None

PATIENT
  Sex: Male
  Weight: 85 kg

DRUGS (1)
  1. RETEVASE [Suspect]
     Indication: ACUTE MYOCARDIAL INFARCTION
     Dosage: 5+5 UNITS IV PUSH
     Route: 042
     Dates: start: 20050725

REACTIONS (2)
  - CORONARY ARTERY SURGERY [None]
  - INTRA-AORTIC BALLOON PLACEMENT [None]
